FAERS Safety Report 5672254-5 (Version None)
Quarter: 2008Q1

REPORT INFORMATION
  Report Type: 
  Country: None (occurrence: None)
  Receive Date: 20080317
  Receipt Date: 20080303
  Transmission Date: 20080703
  Serious: Yes (Hospitalization, Other)
  Sender: FDA-Public Use
  Company Number: A-NJ2008-19662

PATIENT
  Age: 59 Year
  Sex: Female

DRUGS (3)
  1. TRACLEER [Suspect]
     Indication: PULMONARY HYPERTENSION
     Dosage: 62.5 MG, SINGLE, ORAL
     Route: 048
     Dates: start: 20080225, end: 20080225
  2. VENTAVIS [Suspect]
     Indication: PULMONARY HYPERTENSION
     Dosage: RESPIRATORY
     Route: 055
  3. SILDENAFIL CITRATE [Concomitant]

REACTIONS (3)
  - ANAPHYLACTIC REACTION [None]
  - RESPIRATORY DISTRESS [None]
  - SEPSIS [None]
